FAERS Safety Report 9177129 (Version 1)
Quarter: 2013Q1

REPORT INFORMATION
  Report Type: Spontaneous
  Country: DE (occurrence: DE)
  Receive Date: 20130321
  Receipt Date: 20130321
  Transmission Date: 20140127
  Serious: Yes (Hospitalization)
  Sender: FDA-Public Use
  Company Number: DE-TEVA-378738GER

PATIENT
  Age: 47 None
  Sex: Female
  Weight: 70 kg

DRUGS (1)
  1. CLINDAMYCIN [Suspect]
     Indication: SINUSITIS
     Dosage: 1800 MILLIGRAM DAILY;
     Route: 048
     Dates: start: 20120515, end: 20120524

REACTIONS (13)
  - Drug hypersensitivity [Recovering/Resolving]
  - Dyspnoea [Recovered/Resolved]
  - Urticaria [Recovering/Resolving]
  - Pruritus [Not Recovered/Not Resolved]
  - Lacrimation increased [Recovered/Resolved]
  - Rhinorrhoea [Recovered/Resolved]
  - Erythema [Not Recovered/Not Resolved]
  - Rash [Not Recovered/Not Resolved]
  - Gastroenteritis [Recovered/Resolved]
  - Vomiting [Recovered/Resolved]
  - Diarrhoea [Recovered/Resolved]
  - Restlessness [Recovered/Resolved]
  - Eye pain [None]
